FAERS Safety Report 20194383 (Version 3)
Quarter: 2022Q1

REPORT INFORMATION
  Report Type: Spontaneous
  Country: MY (occurrence: MY)
  Receive Date: 20211216
  Receipt Date: 20220114
  Transmission Date: 20220424
  Serious: Yes (Death, Hospitalization, Other)
  Sender: FDA-Public Use
  Company Number: MY-BoehringerIngelheim-2021-BI-143995

PATIENT
  Age: 75 Year
  Sex: Female

DRUGS (1)
  1. DABIGATRAN ETEXILATE [Suspect]
     Active Substance: DABIGATRAN ETEXILATE
     Indication: Atrial fibrillation
     Route: 048
     Dates: end: 20211210

REACTIONS (4)
  - Death [Fatal]
  - Upper gastrointestinal haemorrhage [Unknown]
  - Cardiac arrest [Unknown]
  - Tachycardia [Unknown]

NARRATIVE: CASE EVENT DATE: 20210101
